FAERS Safety Report 5227555-1 (Version None)
Quarter: 2007Q1

REPORT INFORMATION
  Report Type: 
  Country: None (occurrence: None)
  Receive Date: 20061201
  Receipt Date: 20061003
  Transmission Date: 20070707
  Serious: No
  Sender: FDA-Public Use
  Company Number: US200610000702

PATIENT
  Age: 63 Year
  Sex: Female

DRUGS (6)
  1. CYMBALTA [Suspect]
     Indication: NEUROPATHY
     Dosage: 60 MG
     Dates: start: 20061003
  2. HYDROCODONE BITARTRATE [Concomitant]
  3. PREGABALIN (PREGABALIN) [Concomitant]
  4. AMBIEN [Concomitant]
  5. DIOVAN [Concomitant]
  6. ATENOLOL [Concomitant]

REACTIONS (9)
  - CANDIDIASIS [None]
  - DRY MOUTH [None]
  - FEELING HOT [None]
  - HEART RATE INCREASED [None]
  - HYPERSENSITIVITY [None]
  - LYMPHADENOPATHY [None]
  - NAUSEA [None]
  - SPEECH DISORDER [None]
  - TONGUE DISCOLOURATION [None]
